FAERS Safety Report 5719327-6 (Version None)
Quarter: 2008Q2

REPORT INFORMATION
  Report Type: 
  Country: None (occurrence: None)
  Receive Date: 20080428
  Receipt Date: 20080414
  Transmission Date: 20081010
  Serious: Yes (Hospitalization, Other)
  Sender: FDA-Public Use
  Company Number: US-ELI_LILLY_AND_COMPANY-US200803002116

PATIENT
  Sex: Female

DRUGS (12)
  1. FORTEO [Suspect]
     Indication: OSTEOPOROSIS
     Dosage: UNK, UNK
     Dates: start: 20071011
  2. FORTEO [Suspect]
  3. PLAVIX [Concomitant]
  4. CRESTOR [Concomitant]
  5. ASPIRIN [Concomitant]
  6. NIASPAN [Concomitant]
  7. PROPOXYPHENE HYDROCHLORIDE [Concomitant]
  8. LEVAQUIN [Concomitant]
  9. FLAGYL [Concomitant]
  10. OMEPRAZOLE [Concomitant]
  11. DOCIRETIC [Concomitant]
  12. CITRACAL [Concomitant]

REACTIONS (9)
  - ASTHENIA [None]
  - BLOOD PRESSURE INCREASED [None]
  - CORONARY ARTERY BYPASS [None]
  - DECREASED APPETITE [None]
  - DYSPNOEA [None]
  - HOSPITALISATION [None]
  - PAIN [None]
  - PLEURAL EFFUSION [None]
  - URINARY TRACT INFECTION [None]
